FAERS Safety Report 21300407 (Version 1)
Quarter: 2022Q3

REPORT INFORMATION
  Report Type: Spontaneous
  Country: US (occurrence: US)
  Receive Date: 20220907
  Receipt Date: 20220907
  Transmission Date: 20221027
  Serious: Yes (Other)
  Sender: FDA-Public Use
  Company Number: US-STRIDES ARCOLAB LIMITED-2022SP002232

PATIENT
  Age: 39 Year
  Sex: Female

DRUGS (1)
  1. ROSUVASTATIN [Suspect]
     Active Substance: ROSUVASTATIN
     Indication: Type IIa hyperlipidaemia
     Dosage: 10 MILLIGRAM, UNKNOWN
     Route: 065

REACTIONS (3)
  - Rhabdomyolysis [Unknown]
  - Non-alcoholic steatohepatitis [Recovered/Resolved]
  - Chronic hepatic failure [Recovered/Resolved]

NARRATIVE: CASE EVENT DATE: 20190401
